FAERS Safety Report 16966082 (Version 8)
Quarter: 2021Q2

REPORT INFORMATION
  Report Type: Spontaneous
  Country: US (occurrence: US)
  Receive Date: 20191028
  Receipt Date: 20210510
  Transmission Date: 20210716
  Serious: No
  Sender: FDA-Public Use
  Company Number: US-PFIZER INC-2019462849

PATIENT
  Age: 73 Year
  Sex: Female

DRUGS (3)
  1. TOVIAZ [Suspect]
     Active Substance: FESOTERODINE FUMARATE
     Dosage: 4 MG
  2. TOVIAZ [Suspect]
     Active Substance: FESOTERODINE FUMARATE
     Dosage: 8 MG, 1X/DAY (EVERY NIGHT) (STRENGTH: 8 MG)
     Route: 048
  3. TOVIAZ [Suspect]
     Active Substance: FESOTERODINE FUMARATE
     Indication: URINARY INCONTINENCE
     Dosage: 4 MG, 1X/DAY (EVERY NIGHT)
     Route: 048

REACTIONS (7)
  - Drug ineffective [Unknown]
  - Middle insomnia [Unknown]
  - Lip dry [Recovering/Resolving]
  - Enuresis [Unknown]
  - Dry mouth [Recovering/Resolving]
  - Dry throat [Recovering/Resolving]
  - Vulvovaginal dryness [Recovering/Resolving]
